FAERS Safety Report 5849335-6 (Version None)
Quarter: 2008Q3

REPORT INFORMATION
  Report Type: 
  Country: None (occurrence: None)
  Receive Date: 20080815
  Receipt Date: 20080801
  Transmission Date: 20090109
  Serious: Yes (Hospitalization)
  Sender: FDA-Public Use
  Company Number: 2008BI019817

PATIENT
  Age: 80 Year
  Sex: Female
  Weight: 75.2971 kg

DRUGS (11)
  1. ZEVALIN [Suspect]
     Indication: B-CELL LYMPHOMA
     Dosage: 30.2 MCI; 1X; IV
     Route: 042
     Dates: start: 20080513
  2. SENNA (CON.) [Concomitant]
  3. LYRICA (CON.) [Concomitant]
  4. COLACE (CON.) [Concomitant]
  5. FENTANYL BATCH (CON.) [Concomitant]
  6. ENALAPRIL (CON.) [Concomitant]
  7. GLYBURIDE (CON.) [Concomitant]
  8. LEVOTHYROXINE (CON.) [Concomitant]
  9. LACTULOSE (CON.) [Concomitant]
  10. RITUXAN (CON.) [Concomitant]
  11. BORTEZOMIB (CON.) [Concomitant]

REACTIONS (13)
  - ASTHENIA [None]
  - DEHYDRATION [None]
  - DEPRESSION [None]
  - DIABETIC NEUROPATHY [None]
  - DYSPHAGIA [None]
  - EATING DISORDER [None]
  - EMOTIONAL DISORDER [None]
  - FAILURE TO THRIVE [None]
  - FATIGUE [None]
  - GAIT DISTURBANCE [None]
  - GASTRITIS [None]
  - PAIN [None]
  - SPINAL OSTEOARTHRITIS [None]
